FAERS Safety Report 7139162-4 (Version None)
Quarter: 2010Q4

REPORT INFORMATION
  Report Type: 
  Country: None (occurrence: None)
  Receive Date: 20101206
  Receipt Date: 20101125
  Transmission Date: 20110411
  Serious: Yes (Other)
  Sender: FDA-Public Use
  Company Number: JP-ASTRAZENECA-2010SE56298

PATIENT
  Sex: Female

DRUGS (1)
  1. OMEPRAL [Suspect]
     Route: 048
     Dates: start: 20100901

REACTIONS (4)
  - ANXIETY [None]
  - FEAR [None]
  - IRRITABILITY [None]
  - SUICIDAL IDEATION [None]
